FAERS Safety Report 10243930 (Version 1)
Quarter: 2014Q2

REPORT INFORMATION
  Report Type: Spontaneous
  Country: PL (occurrence: None)
  Receive Date: 20140616
  Receipt Date: 20140616
  Transmission Date: 20141212
  Serious: Yes (Hospitalization)
  Sender: FDA-Public Use
  Company Number: AMLO20140017

PATIENT
  Age: 17 Year
  Sex: Female

DRUGS (3)
  1. AMLODIPINE BESYLATE [Suspect]
     Indication: SUICIDE ATTEMPT
     Route: 048
  2. CAPTOPRIL [Suspect]
     Indication: SUICIDE ATTEMPT
     Route: 048
  3. BISOPROLOL [Suspect]
     Indication: SUICIDE ATTEMPT
     Dosage: 125 MG, ONE DOSE, ORAL
     Route: 048

REACTIONS (12)
  - Cardiac failure acute [None]
  - Multi-organ failure [None]
  - Suicide attempt [None]
  - Intentional overdose [None]
  - Abdominal pain [None]
  - Dizziness [None]
  - Asthenia [None]
  - Hypothermia [None]
  - Blood pressure decreased [None]
  - Heart rate decreased [None]
  - Metabolic acidosis [None]
  - Hyperglycaemia [None]
